FAERS Safety Report 5879679-3 (Version None)
Quarter: 2008Q3

REPORT INFORMATION
  Report Type: 
  Country: None (occurrence: None)
  Receive Date: 20080912
  Receipt Date: 20080908
  Transmission Date: 20090109
  Serious: Yes (Disabling)
  Sender: FDA-Public Use
  Company Number: US-MERCK-0805USA00721

PATIENT
  Age: 64 Year
  Sex: Female

DRUGS (5)
  1. FOSAMAX [Suspect]
     Indication: OSTEOPOROSIS
     Route: 048
     Dates: start: 20010801, end: 20060519
  2. AMITRIPTYLINE HCL [Concomitant]
     Indication: PSORIATIC ARTHROPATHY
     Route: 065
     Dates: start: 19981201, end: 20060101
  3. METHOTREXATE [Concomitant]
     Indication: PSORIATIC ARTHROPATHY
     Route: 065
     Dates: start: 19990901, end: 20060101
  4. ALTACE [Concomitant]
     Indication: HYPERTENSION
     Route: 065
     Dates: start: 19981001
  5. PLAQUENIL [Concomitant]
     Route: 048

REACTIONS (32)
  - ABSCESS [None]
  - ADVERSE EVENT [None]
  - ANXIETY [None]
  - BACTERIAL INFECTION [None]
  - BURSITIS [None]
  - DENTAL CARIES [None]
  - DEPRESSION [None]
  - DRUG INTOLERANCE [None]
  - ECONOMIC PROBLEM [None]
  - EDENTULOUS [None]
  - FIBROMYALGIA [None]
  - GINGIVAL BLEEDING [None]
  - GINGIVAL DISORDER [None]
  - GINGIVAL INFECTION [None]
  - IMPAIRED HEALING [None]
  - JAW DISORDER [None]
  - LIVER DISORDER [None]
  - NECROSIS [None]
  - ORAL INFECTION [None]
  - OSTEOARTHRITIS [None]
  - OSTEONECROSIS [None]
  - PAIN [None]
  - PERIODONTITIS [None]
  - POLYARTHRITIS [None]
  - POOR PERSONAL HYGIENE [None]
  - PSORIASIS [None]
  - PSORIATIC ARTHROPATHY [None]
  - SENSITIVITY OF TEETH [None]
  - TEMPOROMANDIBULAR JOINT SYNDROME [None]
  - TENDONITIS [None]
  - TOOTH INJURY [None]
  - TOOTH LOSS [None]
